FAERS Safety Report 13954490 (Version 1)
Quarter: 2017Q3

REPORT INFORMATION
  Report Type: Spontaneous
  Country: US (occurrence: US)
  Receive Date: 20170910
  Receipt Date: 20170910
  Transmission Date: 20171128
  Serious: Yes (Hospitalization, Disabling)
  Sender: FDA-Public Use
  Company Number: None

PATIENT
  Age: 69 Year
  Sex: Female
  Weight: 60.75 kg

DRUGS (4)
  1. STRIBILD [Concomitant]
     Active Substance: COBICISTAT\ELVITEGRAVIR\EMTRICITABINE\TENOFOVIR DISOPROXIL FUMARATE
  2. VITAMIN D [Concomitant]
     Active Substance: CHOLECALCIFEROL
  3. CALCIUM [Concomitant]
     Active Substance: CALCIUM
  4. PROLIA [Suspect]
     Active Substance: DENOSUMAB
     Indication: OSTEOPOROSIS
     Dates: start: 20170517

REACTIONS (12)
  - Ageusia [None]
  - Joint swelling [None]
  - Constipation [None]
  - Urine odour abnormal [None]
  - Parathyroid disorder [None]
  - Anosmia [None]
  - Swelling [None]
  - Vomiting [None]
  - Arthralgia [None]
  - Oesophageal obstruction [None]
  - Chest pain [None]
  - Weight decreased [None]

NARRATIVE: CASE EVENT DATE: 20170518
